FAERS Safety Report 25018262 (Version 1)
Quarter: 2025Q1

REPORT INFORMATION
  Report Type: Spontaneous
  Country: GB (occurrence: GB)
  Receive Date: 20250227
  Receipt Date: 20250227
  Transmission Date: 20250409
  Serious: Yes (Other)
  Sender: TEVA
  Company Number: GB-MHRA-TPP52357993C25878964YC1740064283397

PATIENT
  Age: 91 Year
  Sex: Female
  Weight: 86 kg

DRUGS (25)
  1. RAMIPRIL [Suspect]
     Active Substance: RAMIPRIL
     Indication: Ill-defined disorder
     Route: 065
     Dates: start: 20250220
  2. EPLERENONE [Concomitant]
     Active Substance: EPLERENONE
     Indication: Ill-defined disorder
     Dosage: ONE TO BE TAKEN EACH DAY, 1 DOSAGE FORMS DAILY, DURATION: 84 DAYS
     Dates: start: 20241128, end: 20250219
  3. HYPROMELLOSES [Concomitant]
     Active Substance: HYPROMELLOSES
     Indication: Ill-defined disorder
     Dates: start: 20221111, end: 20250219
  4. CYANOCOBALAMIN [Concomitant]
     Active Substance: CYANOCOBALAMIN
     Indication: Prophylaxis
     Dosage: 1 DAILY,  FOR 2 MONTHS ..., DURATION: 3.195 YEARS
     Dates: start: 20211212, end: 20250219
  5. VICTOZA [Concomitant]
     Active Substance: LIRAGLUTIDE
     Indication: Ill-defined disorder
     Dosage: 1.2 MG (0.2 ML) DAILY, 1.2 MG DAILY, DURATION: 5.677 YEARS
     Route: 058
     Dates: start: 20190620, end: 20250219
  6. LOSARTAN [Concomitant]
     Active Substance: LOSARTAN
     Indication: Ill-defined disorder
     Dosage: ONE TO BE TAKEN EACH DAY, DURATION: 1.46 YEARS
     Dates: start: 20230906, end: 20250219
  7. LANSOPRAZOLE [Concomitant]
     Active Substance: LANSOPRAZOLE
     Indication: Ill-defined disorder
     Dosage: ONE TO BE TAKEN EACH MORNING, DURATION : 251 DAYS, 1 DOSAGE FORMS DAILY
     Dates: start: 20240614, end: 20250219
  8. GLICLAZIDE [Concomitant]
     Active Substance: GLICLAZIDE
     Indication: Ill-defined disorder
     Dosage: ONE TO BE TAKEN TWICE A DAY, 2 DOSAGE FORMS DAILY, DURATION: 19.638 YEARS
     Dates: start: 20050707, end: 20250219
  9. TRELEGY ELLIPTA [Concomitant]
     Active Substance: FLUTICASONE FUROATE\UMECLIDINIUM BROMIDE\VILANTEROL TRIFENATATE
     Indication: Ill-defined disorder
     Dosage: 1 ONCE DAILY, DURATION: 6.003 YEARS, 1 DOSAGE FORMS DAILY
     Dates: start: 20190221, end: 20250219
  10. BISOPROLOL [Concomitant]
     Active Substance: BISOPROLOL
     Indication: Ill-defined disorder
     Dosage: ONE TO BE TAKEN IN THE MORNING, DURATION : 251 DAYS, 1 DOSAGE FORMS DAILY
     Dates: start: 20240614, end: 20250219
  11. INSULIN GLARGINE [Concomitant]
     Active Substance: INSULIN GLARGINE
     Indication: Ill-defined disorder
     Route: 058
     Dates: start: 20230103, end: 20250219
  12. ACETAMINOPHEN [Concomitant]
     Active Substance: ACETAMINOPHEN
     Indication: Ill-defined disorder
     Dates: start: 20151216, end: 20250219
  13. ALBUTEROL [Concomitant]
     Active Substance: ALBUTEROL
     Indication: Ill-defined disorder
     Route: 055
     Dates: start: 20220606, end: 20250219
  14. GLUCOPHAGE [Concomitant]
     Active Substance: METFORMIN HYDROCHLORIDE
     Indication: Ill-defined disorder
     Dosage: ONE TO BE TAKEN DAILY, DURATION: 19.638 YEARS, 1 DOSAGE FORMS DAILY
     Dates: start: 20050707, end: 20250219
  15. VOLTAROL [Concomitant]
     Active Substance: DICLOFENAC SODIUM
     Indication: Ill-defined disorder
     Dates: start: 20040202, end: 20250219
  16. DAPAGLIFLOZIN [Concomitant]
     Active Substance: DAPAGLIFLOZIN
     Indication: Ill-defined disorder
     Dosage: ONE TO BE TAKEN DAILY, DURATION : 231 DAYS, 1 DOSAGE FORMS DAILY
     Dates: start: 20240704, end: 20250219
  17. DICLOFENAC SODIUM [Concomitant]
     Active Substance: DICLOFENAC SODIUM
     Indication: Ill-defined disorder
     Dates: start: 20000721, end: 20250219
  18. FUROSEMIDE [Concomitant]
     Active Substance: FUROSEMIDE
     Indication: Ill-defined disorder
     Dosage: TAKE TWO TABLETS IN THE MORNING (80MG) AND  TAK..., DURATION : 128 DAYS, 2 DOSAGE FORMS DAILY
     Dates: start: 20241015, end: 20250219
  19. CARBOCYSTEINE [Concomitant]
     Active Substance: CARBOCYSTEINE
     Indication: Ill-defined disorder
     Dosage: TWO TO BE TAKEN TWICE A DAY TO HELP LOOSEN CATARRH, DURATION: 2.279 YEARS, 4 DOSAGE FORMS DAILY
     Dates: start: 20221111, end: 20250219
  20. POLYETHYLENE GLYCOL 3350\POTASSIUM CHLORIDE\SODIUM BICARBONATE\SODIUM [Concomitant]
     Active Substance: POLYETHYLENE GLYCOL 3350\POTASSIUM CHLORIDE\SODIUM BICARBONATE\SODIUM CHLORIDE
     Indication: Ill-defined disorder
     Dates: start: 20171228, end: 20250219
  21. AMITRIPTYLINE HYDROCHLORIDE [Concomitant]
     Active Substance: AMITRIPTYLINE HYDROCHLORIDE
     Indication: Insomnia
     Dosage: ONE TO BE TAKEN AT NIGHT, 1 DOSAGE FORMS DAILY, DURATION: 1.216 YEARS
     Dates: start: 20231204, end: 20250219
  22. APIXABAN [Concomitant]
     Active Substance: APIXABAN
     Indication: Ill-defined disorder
     Dosage: ONE TO BE TAKEN TWICE A DAY, DURATION : 251 DAYS, 2 DOSAGE FORMS DAILY
     Dates: start: 20240614, end: 20250219
  23. NITROGLYCERIN [Concomitant]
     Active Substance: NITROGLYCERIN
     Indication: Ill-defined disorder
     Dates: start: 20070302, end: 20250219
  24. CODEINE PHOSPHATE [Concomitant]
     Active Substance: CODEINE PHOSPHATE
     Indication: Ill-defined disorder
     Dates: start: 20040401, end: 20250219
  25. CLOPIDOGREL [Concomitant]
     Active Substance: CLOPIDOGREL BISULFATE
     Indication: Ill-defined disorder
     Dosage: ONE TO BE TAKEN , DURATION: 16.452 YEARS
     Dates: start: 20080912, end: 20250219

REACTIONS (1)
  - Drug interaction [Unknown]
